FAERS Safety Report 8580931 (Version 4)
Quarter: 2014Q1

REPORT INFORMATION
  Report Type: Spontaneous
  Country: US (occurrence: US)
  Receive Date: 20120525
  Receipt Date: 20130107
  Transmission Date: 20141002
  Serious: Yes (Hospitalization, Other)
  Sender: FDA-Public Use
  Company Number: PHEH2012US010736

PATIENT
  Age: 36 Year
  Sex: Female
  Weight: 78.6 kg

DRUGS (25)
  1. GILENYA (FTY) CAPSULE, 0.5MG [Suspect]
     Indication: RELAPSING-REMITTING MULTIPLE SCLEROSIS
     Route: 048
     Dates: start: 20111130
  2. DITROPAN XL [Concomitant]
  3. TEGRETOL (CARBAMAZEPINE) [Concomitant]
  4. LITHIUM TABLET [Concomitant]
  5. FLOMAX (TAMSULOSIN HYDROCHLORIDE) CAPSULE [Concomitant]
  6. KLONOPIN (CLONAZEPAM) TABLET [Concomitant]
  7. LAMICTAL (LAMOTRIGINE) EXTENDED RELEASE TABLET [Concomitant]
  8. OMEGA-3 FATTY ACIDS CAPSULE [Concomitant]
  9. CITRUCEL (METHYLCELLULOSE) TABLET [Concomitant]
  10. PROBIOTICS (NO INGREDIENTS/SUBSTANCES) [Concomitant]
  11. DEPAKOTE (VALPROATE SEMISODIUM) TABLET [Concomitant]
  12. ZYRTEC (CETIRIZINE HYDROCHLORIDE) TABLET [Concomitant]
  13. VITAMIN D3 (COLECALCIFEROL) TABLET [Concomitant]
  14. MULTIVITAMINS (ASCORBIC ACID, ERGOCALCIFEROL, FOLIC ACID, NICOTINAMIDE, PANTHENOL, RETINOL, RIBOFLAVIN, THIAMINE HYDROCHLORIDE) [Concomitant]
  15. NUVARING (ETHINYLESTRADIOL, ETONOGESTREL) [Concomitant]
  16. ARMOUR THYROID (THYROID) TABLET [Concomitant]
  17. DEPLIN (CALCIUM L-METHYLFOLATE) TABLET [Concomitant]
  18. PROGESTERONE [Concomitant]
  19. MACROBID (NITROFURANTOIN) CAPSULE [Concomitant]
  20. FOLVITE (FOLIC ACID) TABLET [Concomitant]
  21. THERAGAN (VITAMINS NOS) TABLET [Concomitant]
  22. LEVOTHROID (LEVOTHYROXINE SODIUM) TABLET [Concomitant]
  23. XANAX (ALPRAZOLAM) [Concomitant]
  24. ZYREXA (OLANZAPINE) [Concomitant]
  25. DITROPAN (OXYBUTYNIN HYDROCHLORIDE) [Concomitant]

REACTIONS (35)
  - Multiple sclerosis [None]
  - Multiple sclerosis relapse [None]
  - Abdominal distension [None]
  - Abdominal discomfort [None]
  - Abdominal pain upper [None]
  - Migraine [None]
  - Fatigue [None]
  - Vertigo [None]
  - Dizziness [None]
  - Nausea [None]
  - Paraesthesia [None]
  - Muscular weakness [None]
  - Muscle spasticity [None]
  - Hypoaesthesia [None]
  - Nystagmus [None]
  - Eye movement disorder [None]
  - Visual impairment [None]
  - Pain [None]
  - Hypophagia [None]
  - Dysphagia [None]
  - Sleep disorder [None]
  - Urinary incontinence [None]
  - Faecal incontinence [None]
  - Functional gastrointestinal disorder [None]
  - Cognitive disorder [None]
  - Ataxia [None]
  - Tremor [None]
  - Gait disturbance [None]
  - Pupillary reflex impaired [None]
  - Temperature difference of extremities [None]
  - Depression [None]
  - Cervical myelopathy [None]
  - Myelopathy [None]
  - Myelitis transverse [None]
  - Central nervous system lesion [None]
